FAERS Safety Report 6307470-2 (Version None)
Quarter: 2009Q3

REPORT INFORMATION
  Report Type: 
  Country: None (occurrence: None)
  Receive Date: 20090813
  Receipt Date: 20090803
  Transmission Date: 20100115
  Serious: Yes (Hospitalization)
  Sender: FDA-Public Use
  Company Number: NL-ROCHE-647489

PATIENT
  Sex: Female
  Weight: 66 kg

DRUGS (6)
  1. CAPECITABINE [Suspect]
     Dosage: DATE OF RECENT ADMINISTRATION : 30 JULY 2009. FROM DAY 1 TO DAY 14.  ACTUAL DOSE GIVEN : 1500
     Route: 048
     Dates: start: 20090724
  2. DOCETAXEL [Suspect]
     Dosage: ON DAY 1.  ACTUAL DOSE GIVEN : 130.00
     Route: 042
     Dates: start: 20090724
  3. ATENOLOL [Concomitant]
     Route: 048
     Dates: start: 19980101
  4. CHLOROTHIAZIDE [Concomitant]
     Route: 048
     Dates: start: 19980101
  5. RAMIPRIL [Concomitant]
     Route: 048
     Dates: start: 19980101
  6. MAGNESIUM HYDROXIDE TAB [Concomitant]
     Route: 048
     Dates: start: 20090728

REACTIONS (4)
  - DIARRHOEA [None]
  - HYPOKALAEMIA [None]
  - HYPONATRAEMIA [None]
  - SYNCOPE [None]
